FAERS Safety Report 11402264 (Version 1)
Quarter: 2015Q3

REPORT INFORMATION
  Report Type: Spontaneous
  Country: US (occurrence: US)
  Receive Date: 20150821
  Receipt Date: 20150821
  Transmission Date: 20151125
  Serious: No
  Sender: FDA-Public Use
  Company Number: US-ROCHE-1326281

PATIENT
  Sex: Female

DRUGS (5)
  1. PEGASYS [Suspect]
     Active Substance: PEGINTERFERON ALFA-2A
     Indication: CHRONIC HEPATITIS C
     Route: 058
     Dates: start: 20131002
  2. TELAPREVIR [Suspect]
     Active Substance: TELAPREVIR
     Indication: CHRONIC HEPATITIS C
     Route: 065
     Dates: start: 20131002, end: 20131225
  3. RIBASPHERE [Suspect]
     Active Substance: RIBAVIRIN
     Dosage: 600 MG ALTERNATING WITH 400 MG EVERY OTHER DAY BASIS
     Route: 048
  4. RIBASPHERE [Suspect]
     Active Substance: RIBAVIRIN
     Dosage: 600 MG ALTERNATING WITH 400 MG EVERY OTHER DAY BASIS
     Route: 048
  5. RIBASPHERE [Suspect]
     Active Substance: RIBAVIRIN
     Indication: CHRONIC HEPATITIS C
     Route: 048
     Dates: start: 20131002

REACTIONS (2)
  - Memory impairment [Unknown]
  - Anaemia [Unknown]
